FAERS Safety Report 8087201-9 (Version None)
Quarter: 2012Q1

REPORT INFORMATION
  Report Type: 
  Country: None (occurrence: None)
  Receive Date: 20120128
  Receipt Date: 20110526
  Transmission Date: 20120608
  Serious: Yes (Other)
  Sender: FDA-Public Use
  Company Number: US-ABBOTT-11P-163-0722040-00

PATIENT
  Sex: Female

DRUGS (8)
  1. LEXOPRYL [Concomitant]
     Indication: DEPRESSION
     Dates: start: 19950101
  2. MERCAPTOPURINE [Concomitant]
     Indication: CROHN'S DISEASE
     Dates: start: 20080101, end: 20101001
  3. HUMIRA [Suspect]
     Indication: PSORIATIC ARTHROPATHY
     Route: 058
     Dates: end: 20110401
  4. PREDNISONE TAB [Concomitant]
     Indication: CROHN'S DISEASE
  5. PRO-ACTIVE [Concomitant]
     Indication: PRODUCT USED FOR UNKNOWN INDICATION
  6. CALCIUM [Concomitant]
     Indication: PRODUCT USED FOR UNKNOWN INDICATION
     Dosage: DAILY
     Dates: start: 20101001
  7. MERCAPTOPURINE [Concomitant]
     Dosage: 100 MG DAILY
     Dates: start: 20101201
  8. MULTI-VITAMINS [Concomitant]
     Indication: PRODUCT USED FOR UNKNOWN INDICATION
     Dosage: DAILY
     Dates: start: 20101001

REACTIONS (11)
  - FATIGUE [None]
  - CROHN'S DISEASE [None]
  - LYMPHOMA [None]
  - PAIN IN EXTREMITY [None]
  - PAIN [None]
  - ABDOMINAL PAIN [None]
  - ABDOMINAL DISTENSION [None]
  - ARTHRALGIA [None]
  - LYMPHADENOPATHY [None]
  - HYPOAESTHESIA [None]
  - PARAESTHESIA [None]
